FAERS Safety Report 13158713 (Version 1)
Quarter: 2017Q1

REPORT INFORMATION
  Report Type: Spontaneous
  Country: US (occurrence: US)
  Receive Date: 20170127
  Receipt Date: 20170127
  Transmission Date: 20170428
  Serious: Yes (Other)
  Sender: FDA-Public Use
  Company Number: None

PATIENT
  Sex: Female
  Weight: 31.1 kg

DRUGS (1)
  1. PROVENTIL HFA [Suspect]
     Active Substance: ALBUTEROL SULFATE
     Indication: BRONCHOSPASM
     Dosage: FREQUENCY - Q4 TO 6HRS PRN
     Route: 055
     Dates: start: 20161216, end: 20170111

REACTIONS (3)
  - Vomiting [None]
  - Tachycardia [None]
  - Dizziness [None]

NARRATIVE: CASE EVENT DATE: 2016
